FAERS Safety Report 4941196-2 (Version None)
Quarter: 2006Q1

REPORT INFORMATION
  Report Type: 
  Country: None (occurrence: None)
  Receive Date: 20060308
  Receipt Date: 20060223
  Transmission Date: 20060701
  Serious: Yes (Death)
  Sender: FDA-Public Use
  Company Number: 2006027175

PATIENT
  Age: 70 Year
  Sex: 0

DRUGS (1)
  1. SILDENAFIL CITRATE [Suspect]
     Indication: PULMONARY HYPERTENSION
     Dosage: UNKNOWN, ORAL
     Route: 048

REACTIONS (1)
  - SUDDEN DEATH [None]
